FAERS Safety Report 9880983 (Version 2)
Quarter: 2014Q1

REPORT INFORMATION
  Report Type: Spontaneous
  Country: GB (occurrence: None)
  Receive Date: 20140205
  Receipt Date: 20140305
  Transmission Date: 20141002
  Serious: Yes (Death, Other)
  Sender: FDA-Public Use
  Company Number: AUR-APL-2014-01258

PATIENT
  Age: 19 Year
  Sex: Male

DRUGS (1)
  1. CITALOPRAM [Suspect]
     Indication: DEPRESSION
     Route: 048
     Dates: start: 201209

REACTIONS (4)
  - Completed suicide [None]
  - Depression [None]
  - Alcohol use [None]
  - Treatment noncompliance [None]
